FAERS Safety Report 5702320-7 (Version None)
Quarter: 2008Q2

REPORT INFORMATION
  Report Type: 
  Country: None (occurrence: None)
  Receive Date: 20080411
  Receipt Date: 20080404
  Transmission Date: 20081010
  Serious: Yes (Other)
  Sender: FDA-Public Use
  Company Number: US-AVENTIS-200811914US

PATIENT
  Age: 87 Year
  Sex: Female
  Weight: 66.36 kg

DRUGS (11)
  1. LASIX [Suspect]
  2. TOPROL-XL [Concomitant]
  3. LISINOPRIL [Concomitant]
     Dates: start: 20080311
  4. LISINOPRIL [Concomitant]
     Dates: start: 20080324
  5. LEVOTHYROXINE SODIUM [Concomitant]
  6. CAL-MG-D [Concomitant]
     Dosage: DOSE: 1 TABLET
  7. WARFARIN SODIUM [Concomitant]
  8. LOVASTATIN [Concomitant]
  9. MIRTAZAPINE [Concomitant]
  10. LANTUS [Concomitant]
     Route: 058
     Dates: start: 20080201
  11. LANTUS [Concomitant]
     Route: 058

REACTIONS (12)
  - ABNORMAL BEHAVIOUR [None]
  - BLISTER [None]
  - BLOOD BLISTER [None]
  - DISORIENTATION [None]
  - DYSPHONIA [None]
  - ERYTHEMA [None]
  - HALLUCINATION [None]
  - HYPERSENSITIVITY [None]
  - INSOMNIA [None]
  - MALAISE [None]
  - SWELLING FACE [None]
  - TREMOR [None]
